FAERS Safety Report 7586367-4 (Version None)
Quarter: 2011Q3

REPORT INFORMATION
  Report Type: 
  Country: None (occurrence: None)
  Receive Date: 20110701
  Receipt Date: 20110614
  Transmission Date: 20111222
  Serious: Yes (Hospitalization)
  Sender: FDA-Public Use
  Company Number: A0806058A

PATIENT
  Age: 59 Year
  Sex: Female

DRUGS (15)
  1. PRILOSEC [Concomitant]
  2. HYDROCHLOROTHIAZIDE [Concomitant]
  3. AVANDAMET [Suspect]
     Indication: DIABETES MELLITUS
     Route: 048
     Dates: start: 20040224, end: 20041231
  4. ALTACE [Concomitant]
  5. AVANDIA [Suspect]
     Indication: DIABETES MELLITUS
     Route: 048
     Dates: start: 20050101, end: 20060531
  6. ASPIRIN [Concomitant]
  7. AMARYL [Concomitant]
  8. CYMBALTA [Concomitant]
  9. COREG [Concomitant]
  10. LIPITOR [Concomitant]
  11. METOPROLOL TARTRATE [Concomitant]
  12. PLAVIX [Concomitant]
  13. LISINOPRIL [Concomitant]
  14. PHENYTEK [Concomitant]
  15. CALCIUM CARBONATE [Concomitant]

REACTIONS (3)
  - CEREBROVASCULAR ACCIDENT [None]
  - CARDIOVASCULAR DISORDER [None]
  - CORONARY ARTERY BYPASS [None]
